FAERS Safety Report 11185543 (Version 4)
Quarter: 2015Q3

REPORT INFORMATION
  Report Type: Report from Study
  Country: US (occurrence: US)
  Receive Date: 20150612
  Receipt Date: 20150720
  Transmission Date: 20151125
  Serious: Yes (Death, Hospitalization)
  Sender: FDA-Public Use
  Company Number: US-CELGENE-USA-2015062502

PATIENT
  Age: 87 Year
  Sex: Male
  Weight: 93.98 kg

DRUGS (2)
  1. REVLIMID [Suspect]
     Active Substance: LENALIDOMIDE
     Indication: PLASMA CELL MYELOMA
     Dosage: 5 MILLIGRAM
     Route: 048
     Dates: start: 20120319, end: 20150420
  2. DECADRON [Suspect]
     Active Substance: DEXAMETHASONE
     Indication: PLASMA CELL MYELOMA
     Route: 048
     Dates: start: 20120319, end: 20150420

REACTIONS (3)
  - Back pain [Unknown]
  - Death [Fatal]
  - Spinal cord compression [Unknown]

NARRATIVE: CASE EVENT DATE: 20150316
